FAERS Safety Report 20017460 (Version 1)
Quarter: 2021Q4

REPORT INFORMATION
  Report Type: Spontaneous
  Country: IT (occurrence: IT)
  Receive Date: 20211030
  Receipt Date: 20211030
  Transmission Date: 20220303
  Serious: Yes (Other)
  Sender: FDA-Public Use
  Company Number: IT-MLMSERVICE-20211014-3165835-1

PATIENT
  Age: 28 Year
  Sex: Female

DRUGS (4)
  1. TOPIRAMATE [Interacting]
     Active Substance: TOPIRAMATE
     Indication: Severe myoclonic epilepsy of infancy
  2. STIRIPENTOL [Interacting]
     Active Substance: STIRIPENTOL
     Indication: Severe myoclonic epilepsy of infancy
  3. VALPROIC ACID [Interacting]
     Active Substance: VALPROIC ACID
     Indication: Severe myoclonic epilepsy of infancy
  4. CLONAZEPAM [Concomitant]
     Active Substance: CLONAZEPAM
     Indication: Severe myoclonic epilepsy of infancy

REACTIONS (3)
  - Hyperammonaemic encephalopathy [Recovering/Resolving]
  - Drug interaction [Unknown]
  - Off label use [Unknown]
